FAERS Safety Report 21773930 (Version 2)
Quarter: 2022Q4

REPORT INFORMATION
  Report Type: Spontaneous
  Country: IN (occurrence: IN)
  Receive Date: 20221223
  Receipt Date: 20221229
  Transmission Date: 20230112
  Serious: Yes (Hospitalization, Other)
  Sender: FDA-Public Use
  Company Number: IN-PFIZER INC-PV202200127042

PATIENT
  Age: 40 Year
  Sex: Female

DRUGS (4)
  1. PALBOCICLIB [Suspect]
     Active Substance: PALBOCICLIB
     Dosage: 125 MG, CYCLIC (DAY1-21/28 DAYS)
     Route: 048
     Dates: start: 20220418
  2. LEUPROLIDE ACETATE [Concomitant]
     Active Substance: LEUPROLIDE ACETATE
  3. ZOLEDRONIC ACID [Concomitant]
     Active Substance: ZOLEDRONIC ACID
  4. LETROZOLE [Concomitant]
     Active Substance: LETROZOLE

REACTIONS (12)
  - Salpingo-oophorectomy bilateral [Unknown]
  - Breast mass [Unknown]
  - Respiratory rate increased [Unknown]
  - Haemoglobin decreased [Unknown]
  - Neoplasm progression [Unknown]
  - Creatinine renal clearance increased [Unknown]
  - White blood cell count decreased [Unknown]
  - Neutrophil percentage increased [Unknown]
  - Lymphocyte percentage decreased [Unknown]
  - Eosinophil percentage decreased [Unknown]
  - Heart rate increased [Unknown]
  - Dysuria [Unknown]

NARRATIVE: CASE EVENT DATE: 20220905
